FAERS Safety Report 15349127 (Version 1)
Quarter: 2018Q3

REPORT INFORMATION
  Report Type: Spontaneous
  Country: CN (occurrence: CN)
  Receive Date: 20180904
  Receipt Date: 20180904
  Transmission Date: 20181010
  Serious: Yes (Other)
  Sender: FDA-Public Use
  Company Number: CN-MYLANLABS-2018M1064097

PATIENT
  Age: 62 Year
  Sex: Male

DRUGS (3)
  1. ETOPOSIDE. [Suspect]
     Active Substance: ETOPOSIDE
     Dosage: RECEIVED SIX CYCLES OF FOURTH?LINE CHEMOTHERAPY WITH ETOPOSIDE AND CISPLATIN
     Route: 065
     Dates: start: 201608, end: 201612
  2. CARBOPLATIN. [Suspect]
     Active Substance: CARBOPLATIN
     Indication: SMALL CELL LUNG CANCER
     Dosage: ETOPOSIDE AND CARBOPLATIN REGIMEN FOR FIRST?LINE CHEMOTHERAPY
     Route: 065
     Dates: start: 201404, end: 201408
  3. ETOPOSIDE. [Suspect]
     Active Substance: ETOPOSIDE
     Indication: SMALL CELL LUNG CANCER
     Dosage: ETOPOSIDE AND CARBOPLATIN REGIMEN FOR FIRST?LINE CHEMOTHERAPY
     Route: 065
     Dates: start: 201404, end: 201408

REACTIONS (4)
  - Blood bilirubin increased [Unknown]
  - Gastrointestinal toxicity [Unknown]
  - Alopecia [Unknown]
  - Leukopenia [Unknown]
